FAERS Safety Report 22046385 (Version 1)
Quarter: 2023Q1

REPORT INFORMATION
  Report Type: Spontaneous
  Country: US (occurrence: US)
  Receive Date: 20230228
  Receipt Date: 20230228
  Transmission Date: 20230417
  Serious: No
  Sender: FDA-Public Use
  Company Number: US-BAUSCH-BL-2023-003207

PATIENT
  Sex: Female

DRUGS (2)
  1. RETIN-A MICRO [Suspect]
     Active Substance: TRETINOIN
     Indication: Rash
     Dosage: AS NEEDED
     Route: 061
  2. RETIN-A MICRO [Suspect]
     Active Substance: TRETINOIN
     Route: 061

REACTIONS (2)
  - Application site exfoliation [Recovering/Resolving]
  - Expired product administered [Unknown]
